FAERS Safety Report 8295788-6 (Version None)
Quarter: 2012Q2

REPORT INFORMATION
  Report Type: 
  Country: None (occurrence: None)
  Receive Date: 20120418
  Receipt Date: 20120417
  Transmission Date: 20120825
  Serious: No
  Sender: FDA-Public Use
  Company Number: US-BAYER-2012-037461

PATIENT
  Age: 32 Year
  Sex: Female
  Weight: 88 kg

DRUGS (9)
  1. FISH OIL [Concomitant]
  2. FLONASE [Concomitant]
     Route: 045
  3. VITAMIN B-12 [Concomitant]
     Dosage: 50 MCG
  4. ALBUTEROL [Concomitant]
     Dosage: 2 MG
  5. B-COMPLEX [VITAMIN B NOS] [Concomitant]
     Dosage: 1TAB
  6. VITAMIN D [Concomitant]
     Dosage: 400 UNITS
  7. BETASERON [Suspect]
     Indication: PRODUCT USED FOR UNKNOWN INDICATION
     Dosage: 0.25 MG, QOD
     Route: 058
  8. FLUOXETINE [Concomitant]
     Dosage: 10 MG
  9. FOLIC ACID [Concomitant]
     Dosage: 1 MG TAB

REACTIONS (8)
  - PRURITUS [None]
  - INJECTION SITE REACTION [None]
  - ERYTHEMA [None]
  - RASH PAPULAR [None]
  - SWELLING [None]
  - PAIN [None]
  - INJECTION SITE INDURATION [None]
  - RASH [None]
